FAERS Safety Report 24014397 (Version 8)
Quarter: 2025Q1

REPORT INFORMATION
  Report Type: Spontaneous
  Country: JP (occurrence: JP)
  Receive Date: 20240626
  Receipt Date: 20250220
  Transmission Date: 20250408
  Serious: Yes (Other)
  Sender: GENMAB
  Company Number: JP-GENMAB-2024-01816AA

PATIENT
  Age: 82 Year
  Sex: Male

DRUGS (21)
  1. EPKINLY [Suspect]
     Active Substance: EPCORITAMAB-BYSP
     Indication: Diffuse large B-cell lymphoma
     Route: 058
     Dates: start: 20240509, end: 20240509
  2. EPKINLY [Suspect]
     Active Substance: EPCORITAMAB-BYSP
     Route: 065
     Dates: start: 20240516, end: 20240516
  3. EPKINLY [Suspect]
     Active Substance: EPCORITAMAB-BYSP
     Dosage: 48 MILLIGRAM, WEEKLY
     Route: 058
     Dates: start: 20240523, end: 20240530
  4. EPKINLY [Suspect]
     Active Substance: EPCORITAMAB-BYSP
     Route: 058
     Dates: start: 20240620, end: 20250107
  5. PREDNISOLONE [Suspect]
     Active Substance: PREDNISOLONE
     Indication: Prophylaxis
     Route: 065
     Dates: start: 20240509, end: 20240602
  6. PREDNISOLONE [Suspect]
     Active Substance: PREDNISOLONE
     Route: 065
     Dates: start: 20240620, end: 202407
  7. PREDNISOLONE [Suspect]
     Active Substance: PREDNISOLONE
     Route: 065
     Dates: start: 2024, end: 2024
  8. PREDNISOLONE [Suspect]
     Active Substance: PREDNISOLONE
     Route: 065
     Dates: start: 2024, end: 2024
  9. PREDNISOLONE [Suspect]
     Active Substance: PREDNISOLONE
     Route: 065
     Dates: start: 2024
  10. ANTIHISTAMINES NOS [Concomitant]
     Active Substance: ANTIHISTAMINES NOS
     Indication: Prophylaxis
     Dates: start: 20240509, end: 20240530
  11. UNSPECIFIED INGREDIENT [Concomitant]
     Active Substance: UNSPECIFIED INGREDIENT
     Indication: Prophylaxis
     Dates: start: 20240509, end: 20240530
  12. ENALAPRIL [Concomitant]
     Active Substance: ENALAPRIL
  13. ASPIRIN [Concomitant]
     Active Substance: ASPIRIN
  14. RABEPRAZOLE SODIUM [Concomitant]
     Active Substance: RABEPRAZOLE SODIUM
  15. ROSUVASTATIN [Concomitant]
     Active Substance: ROSUVASTATIN
  16. CARVEDILOL [Concomitant]
     Active Substance: CARVEDILOL
  17. SPIRONOLACTONE [Concomitant]
     Active Substance: SPIRONOLACTONE
  18. DAPAGLIFLOZIN [Concomitant]
     Active Substance: DAPAGLIFLOZIN
  19. SILODOSIN [Concomitant]
     Active Substance: SILODOSIN
  20. TENELIGLIPTIN [Concomitant]
     Active Substance: TENELIGLIPTIN
  21. INSULIN LISPRO [Concomitant]
     Active Substance: INSULIN LISPRO

REACTIONS (7)
  - Pancytopenia [Unknown]
  - Cytokine release syndrome [Recovered/Resolved]
  - Pneumonia [Recovered/Resolved]
  - Cystitis [Recovering/Resolving]
  - Cystitis [Unknown]
  - COVID-19 [Recovering/Resolving]
  - Malaise [Recovered/Resolved]

NARRATIVE: CASE EVENT DATE: 20240521
